FAERS Safety Report 6078104-X (Version None)
Quarter: 2009Q1

REPORT INFORMATION
  Report Type: 
  Country: None (occurrence: None)
  Receive Date: 20090213
  Receipt Date: 20090202
  Transmission Date: 20090719
  Serious: Yes (Other)
  Sender: FDA-Public Use
  Company Number: CL-PFIZER INC-2009164959

PATIENT

DRUGS (3)
  1. LYRICA [Suspect]
     Indication: NEURALGIA
  2. ATENOLOL [Concomitant]
  3. INSULIN [Concomitant]

REACTIONS (2)
  - BLOOD PRESSURE INCREASED [None]
  - OEDEMA PERIPHERAL [None]
